FAERS Safety Report 14777467 (Version 1)
Quarter: 2018Q2

REPORT INFORMATION
  Report Type: Spontaneous
  Country: CL (occurrence: CL)
  Receive Date: 20180419
  Receipt Date: 20180419
  Transmission Date: 20180711
  Serious: Yes (Other)
  Sender: FDA-Public Use
  Company Number: CL-MERCK KGAA-2046024

PATIENT
  Sex: Female

DRUGS (1)
  1. NOVOTHYROX [Suspect]
     Active Substance: LEVOTHYROXINE SODIUM
     Indication: PRODUCT USED FOR UNKNOWN INDICATION

REACTIONS (9)
  - Psychotic disorder [None]
  - Crying [None]
  - Menopause [None]
  - Sensation of foreign body [None]
  - Fatigue [None]
  - Depression [None]
  - Malaise [None]
  - Gallbladder disorder [None]
  - Dysphagia [None]
